FAERS Safety Report 16184880 (Version 1)
Quarter: 2019Q2

REPORT INFORMATION
  Report Type: Spontaneous
  Country: US (occurrence: US)
  Receive Date: 20190311
  Receipt Date: 20190311
  Transmission Date: 20190711
  Serious: No
  Sender: FDA-Public Use
  Company Number: None

PATIENT
  Age: 62 Year
  Sex: Female

DRUGS (1)
  1. EPCLUSA [Suspect]
     Active Substance: SOFOSBUVIR\VELPATASVIR
     Indication: HEPATITIS C
     Dosage: ?          OTHER DOSE:1 TABLET;?
     Route: 048
     Dates: start: 20181218

REACTIONS (5)
  - Urine odour abnormal [None]
  - Chills [None]
  - Oropharyngeal pain [None]
  - Headache [None]
  - Influenza like illness [None]

NARRATIVE: CASE EVENT DATE: 20190311
